FAERS Safety Report 9095160 (Version 2)
Quarter: 2013Q1

REPORT INFORMATION
  Report Type: Spontaneous
  Country: US (occurrence: None)
  Receive Date: 20130123
  Receipt Date: 20130128
  Transmission Date: 20140127
  Serious: Yes (Hospitalization)
  Sender: FDA-Public Use
  Company Number: JPI-P-029019

PATIENT
  Age: 15 Year
  Sex: Female
  Weight: 55.79 kg

DRUGS (8)
  1. XYREM [Suspect]
     Indication: CATAPLEXY
     Route: 048
     Dates: start: 201001
  2. AMITRIPTYLINE HYDROCHLORIDE [Suspect]
     Indication: CATAPLEXY
  3. DIVALPROEX SODIUM [Concomitant]
  4. CYPROHEPTADINE HYDROCHLORIDE [Concomitant]
  5. RANITIDINE HYDROCHLORIDE [Concomitant]
  6. ESTRADIOL VALERATE AND ESTRADIOL VALERATE DIENOGEST [Concomitant]
  7. ACETAMINOPHEN, BUTALBITAL, AND CAFFEINE [Concomitant]
  8. PROMETHAZINE HYDROCHLORIDE [Concomitant]

REACTIONS (10)
  - Tachycardia [None]
  - Migraine [None]
  - Chest pain [None]
  - Nausea [None]
  - Vomiting [None]
  - Abnormal sleep-related event [None]
  - Initial insomnia [None]
  - Somnambulism [None]
  - Sleep-related eating disorder [None]
  - Feeling drunk [None]
